FAERS Safety Report 7040894 (Version 2)
Quarter: 2020Q3

REPORT INFORMATION
  Report Type: Report from Study
  Country: US (occurrence: US)
  Receive Date: 20090703
  Receipt Date: 20090721
  Transmission Date: 20201105
  Serious: Yes (Death)
  Sender: FDA-Public Use
  Company Number: US-ROCHE-641247

PATIENT
  Age: 81 Year
  Sex: Female

DRUGS (1)
  1. IBANDRONIC ACID. [Suspect]
     Active Substance: IBANDRONIC ACID
     Indication: OSTEOPOROSIS
     Route: 048
     Dates: start: 2004

REACTIONS (4)
  - Ill-defined disorder [Unknown]
  - Dysphagia [Unknown]
  - Cardiac disorder [Fatal]
  - Fall [None]

NARRATIVE: CASE EVENT DATE: 20080101
